FAERS Safety Report 9282296 (Version 1)
Quarter: 2013Q2

REPORT INFORMATION
  Report Type: Spontaneous
  Country: US (occurrence: None)
  Receive Date: 20130509
  Receipt Date: 20130509
  Transmission Date: 20140414
  Serious: No
  Sender: FDA-Public Use
  Company Number: None

PATIENT
  Age: 42 Year
  Sex: Female
  Weight: 57.61 kg

DRUGS (2)
  1. BUPROPION HCL [Suspect]
     Indication: DEPRESSION
     Route: 048
  2. BUPROPION HCL [Suspect]
     Indication: MULTIPLE SCLEROSIS
     Route: 048

REACTIONS (3)
  - Urticaria [None]
  - Pruritus [None]
  - Drug ineffective [None]
